FAERS Safety Report 16567534 (Version 1)
Quarter: 2019Q3

REPORT INFORMATION
  Report Type: Other
  Country: KR (occurrence: KR)
  Receive Date: 20190712
  Receipt Date: 20190712
  Transmission Date: 20191004
  Serious: Yes (Other)
  Sender: FDA-Public Use
  Company Number: KR-AGG-03-2019-1188

PATIENT

DRUGS (8)
  1. INTRAVNEOUS HEPARIN [Concomitant]
     Dosage: 50-80 IU/KG INTRAVENOUS HEPARIN
  2. AGGRASTAT [Suspect]
     Active Substance: TIROFIBAN HYDROCHLORIDE
     Indication: OFF LABEL USE
     Dosage: PATIENT RECEIVED INTRAARTERIAL TIROFIBAN AT RECOMMENDED LOADING DOSE
     Route: 040
  3. CLOPIDOGREL [Concomitant]
     Active Substance: CLOPIDOGREL BISULFATE
     Dosage: DUAL ANTIPLATELET THERAPY (DAPT)
     Route: 048
  4. ASPIRIN. [Concomitant]
     Active Substance: ASPIRIN
     Dosage: DUAL ANTIPLATELET THERAPY (DAPT)
  5. CLOPIDOGREL [Concomitant]
     Active Substance: CLOPIDOGREL BISULFATE
     Dosage: DUAL ANTIPLATELET THERAPY (DAPT)
     Route: 048
  6. ASPIRIN. [Concomitant]
     Active Substance: ASPIRIN
     Dosage: DUAL ANTIPLATELET THERAPY (DAPT)
  7. AGGRASTAT [Suspect]
     Active Substance: TIROFIBAN HYDROCHLORIDE
     Indication: ANTIPLATELET THERAPY
     Dosage: PATIENT RECEIVED INTRAARTERIAL TIROFIBAN AT RECOMMENDED MAINTENANCE DOSE
     Route: 041
  8. HEPARIN [Concomitant]
     Active Substance: HEPARIN SODIUM
     Dosage: ADDITIONAL 100 IU HEPARIN PER HOUR GIVEN TO MAINTAIN THE ACTIVATED CLOTTING TIME
     Route: 041

REACTIONS (2)
  - Vascular stent occlusion [Unknown]
  - Ischaemic cerebral infarction [Unknown]

NARRATIVE: CASE EVENT DATE: 20190107
